FAERS Safety Report 8534012-3 (Version None)
Quarter: 2012Q3

REPORT INFORMATION
  Report Type: 
  Country: None (occurrence: None)
  Receive Date: 20120724
  Receipt Date: 20120709
  Transmission Date: 20120928
  Serious: Yes (Other)
  Sender: FDA-Public Use
  Company Number: IN-WATSON-2012-12158

PATIENT
  Age: 45 Year
  Sex: Female

DRUGS (1)
  1. LOSARTAN POTASSIUM [Suspect]
     Indication: HYPERTENSION
     Dosage: 50 MG, DAILY
     Route: 065

REACTIONS (5)
  - ANGIOEDEMA [None]
  - PYREXIA [None]
  - DYSURIA [None]
  - FEELING ABNORMAL [None]
  - DYSPHONIA [None]
